FAERS Safety Report 21908727 (Version 1)
Quarter: 2023Q1

REPORT INFORMATION
  Report Type: Spontaneous
  Country: US (occurrence: US)
  Receive Date: 20230125
  Receipt Date: 20230125
  Transmission Date: 20230418
  Serious: Yes (Other)
  Sender: FDA-Public Use
  Company Number: US-PFIZER INC-202300034670

PATIENT
  Sex: Female

DRUGS (1)
  1. COLESTID [Suspect]
     Active Substance: COLESTIPOL HYDROCHLORIDE
     Indication: Gallbladder disorder
     Dosage: UNK

REACTIONS (4)
  - Choking [Unknown]
  - Product use complaint [Unknown]
  - Product size issue [Unknown]
  - Off label use [Unknown]
